FAERS Safety Report 5060513-9 (Version None)
Quarter: 2006Q3

REPORT INFORMATION
  Report Type: 
  Country: None (occurrence: None)
  Receive Date: 20060721
  Receipt Date: 20060721
  Transmission Date: 20061208
  Serious: No
  Sender: FDA-Public Use
  Company Number: None

PATIENT
  Age: 36 Year
  Sex: Male
  Weight: 179 kg

DRUGS (1)
  1. PROPRANOLOL [Suspect]
     Dosage: 150 MG DAILY PO
     Route: 048

REACTIONS (1)
  - ATRIOVENTRICULAR BLOCK [None]
